FAERS Safety Report 9607890 (Version 1)
Quarter: 2013Q4

REPORT INFORMATION
  Report Type: Spontaneous
  Country: US (occurrence: None)
  Receive Date: 20131008
  Receipt Date: 20131008
  Transmission Date: 20140711
  Serious: Yes (Disabling)
  Sender: FDA-Public Use
  Company Number: None

PATIENT
  Age: 61 Year
  Sex: Male
  Weight: 97.52 kg

DRUGS (1)
  1. CHANTIX 1MG PFIZER [Suspect]
     Indication: SMOKING CESSATION THERAPY
     Route: 048
     Dates: start: 20130917, end: 20131001

REACTIONS (2)
  - International normalised ratio abnormal [None]
  - Prothrombin time prolonged [None]
